FAERS Safety Report 5487008-2 (Version None)
Quarter: 2007Q4

REPORT INFORMATION
  Report Type: 
  Country: None (occurrence: None)
  Receive Date: 20071012
  Receipt Date: 20071012
  Transmission Date: 20080405
  Serious: Yes (Hospitalization)
  Sender: FDA-Public Use
  Company Number: None

PATIENT
  Age: 38 Year
  Sex: Female
  Weight: 54.4316 kg

DRUGS (2)
  1. LEVAQUIN [Suspect]
     Indication: SINUSITIS
     Dosage: 10  ONCE A DAY  PO
     Route: 048
     Dates: start: 20071003, end: 20071009
  2. AVELOX [Suspect]
     Indication: SINUSITIS
     Dosage: 10 ONCE A DAY PO
     Route: 048
     Dates: start: 20071010, end: 20071010

REACTIONS (5)
  - DIZZINESS [None]
  - INSOMNIA [None]
  - PANIC ATTACK [None]
  - TREMOR [None]
  - VISUAL DISTURBANCE [None]
